FAERS Safety Report 8443715 (Version 14)
Quarter: 2013Q4

REPORT INFORMATION
  Report Type: Report from Study
  Country: NL (occurrence: NL)
  Receive Date: 20120306
  Receipt Date: 20131224
  Transmission Date: 20140711
  Serious: Yes (Hospitalization, Other)
  Sender: FDA-Public Use
  Company Number: PHHO2012NL002291

PATIENT
  Sex: 0

DRUGS (29)
  1. NEORAL [Suspect]
     Indication: RENAL TRANSPLANT
     Dosage: 175 MG, BID
     Route: 048
     Dates: start: 20110805, end: 20120211
  2. NEORAL [Suspect]
     Dosage: NO TREATMENT RECEIVED
     Dates: start: 20120212, end: 20120221
  3. NEORAL [Suspect]
     Route: 048
     Dates: start: 20120222, end: 20120502
  4. NEORAL [Suspect]
     Dosage: 50 MG, BID
     Route: 048
     Dates: start: 20120222
  5. MYFORTIC [Suspect]
     Indication: RENAL TRANSPLANT
     Dosage: 360 MG, BID
     Route: 048
     Dates: start: 20110713, end: 20120211
  6. MYFORTIC [Suspect]
     Dosage: NO TREATMENT RECEIVED
     Dates: start: 20120212, end: 20120221
  7. MYFORTIC [Suspect]
     Dosage: UNK
     Route: 048
     Dates: start: 20120222, end: 20120502
  8. MYFORTIC [Suspect]
     Dosage: 360 MG, BID
     Route: 048
  9. PREDNISOLONE [Suspect]
     Indication: RENAL TRANSPLANT
     Dosage: 10 MG, BID
     Route: 048
     Dates: start: 20110713, end: 20120211
  10. PREDNISOLONE [Suspect]
     Dosage: NO TREATMENT RECEIVED
     Dates: start: 20120212, end: 20120221
  11. PREDNISOLONE [Suspect]
     Dosage: UNK
     Route: 048
     Dates: start: 20120222, end: 20120502
  12. PREDNISOLONE [Suspect]
     Dosage: 5 MG, BID
     Route: 048
  13. LASIX [Concomitant]
     Indication: DIURETIC THERAPY
     Dosage: 500 MG, QD
     Dates: start: 20110718
  14. AMLODIPINE [Concomitant]
     Indication: RESPIRATORY RATE INCREASED
     Dosage: 10 X1
     Dates: start: 20110810
  15. ENALAPRIL [Concomitant]
  16. FUROSEMIDE [Concomitant]
     Indication: RESPIRATORY RATE INCREASED
     Dosage: 250 X1
     Dates: start: 20110810
  17. CARDURA [Concomitant]
     Indication: RESPIRATORY RATE INCREASED
     Dosage: 4 X1
     Dates: start: 20110818
  18. ETALPHA [Concomitant]
     Indication: BONE DISORDER
     Dosage: 0.25 UG, QD
     Dates: start: 20110722
  19. ETALPHA [Concomitant]
     Indication: OSTEOPOROSIS
     Dosage: 0.25 MG, QD
     Dates: start: 20110810
  20. CALCIUM [Concomitant]
     Indication: BONE DISORDER
     Dosage: UNK
     Dates: start: 20110810
  21. CALCIUM [Concomitant]
     Indication: MINERAL SUPPLEMENTATION
  22. LIPITOR [Concomitant]
     Indication: BLOOD CHOLESTEROL DECREASED
     Dosage: 10 MG, QD
     Dates: start: 20110713
  23. LIPITOR [Concomitant]
     Dosage: 10 MG, QD
     Dates: start: 20110714
  24. VALCYTE [Concomitant]
     Indication: PROPHYLAXIS
     Dosage: 450 X1
     Dates: start: 20110714
  25. CALCICHEW [Concomitant]
     Indication: MINERAL SUPPLEMENTATION
     Dosage: 500 MG, QD
     Dates: start: 20110722
  26. CALCICHEW [Concomitant]
     Dosage: 500 MG, QD
     Dates: start: 20110810
  27. LISINOPRIL [Concomitant]
     Indication: HYPERTENSION
     Dosage: 5 MG, QD
     Dates: start: 20110106
  28. NEXIUM [Concomitant]
     Indication: PROPHYLAXIS
     Dosage: 40 MG, QD
     Dates: start: 20110713
  29. MONO-CEDOCARD [Concomitant]
     Indication: HYPERTENSION
     Dosage: 50 MG, QD
     Dates: start: 20120217

REACTIONS (14)
  - Diabetes mellitus inadequate control [Not Recovered/Not Resolved]
  - Renal failure acute [Not Recovered/Not Resolved]
  - Confusional state [Not Recovered/Not Resolved]
  - Pneumocystis jirovecii pneumonia [Recovering/Resolving]
  - Escherichia urinary tract infection [Not Recovered/Not Resolved]
  - Oedema peripheral [Recovered/Resolved]
  - Thrombocytopenia [Recovered/Resolved]
  - Leukopenia [Recovered/Resolved]
  - Pyelonephritis [Recovered/Resolved]
  - Hypertension [Recovered/Resolved]
  - Hydronephrosis [Recovered/Resolved with Sequelae]
  - Urethral stenosis [Not Recovered/Not Resolved]
  - Orthostatic hypotension [Recovered/Resolved]
  - Angina pectoris [Recovered/Resolved]
